FAERS Safety Report 5774092-1 (Version None)
Quarter: 2008Q2

REPORT INFORMATION
  Report Type: 
  Country: None (occurrence: None)
  Receive Date: 20080616
  Receipt Date: 20080606
  Transmission Date: 20081010
  Serious: Yes (Hospitalization, Other)
  Sender: FDA-Public Use
  Company Number: JP-MERCK-0805USA04961

PATIENT
  Age: 5 Year
  Sex: Male
  Weight: 31 kg

DRUGS (12)
  1. DECADRON [Suspect]
     Indication: ASTHMA
     Route: 048
     Dates: start: 20070418, end: 20070520
  2. DECADRON [Suspect]
     Route: 048
     Dates: start: 20070608, end: 20070727
  3. DECADRON [Suspect]
     Route: 048
     Dates: start: 20070831
  4. DECADRON [Suspect]
     Route: 048
     Dates: start: 20070727, end: 20070831
  5. PULMICORT [Concomitant]
     Indication: ASTHMA
     Dates: start: 20060901
  6. SEREVENT [Concomitant]
     Indication: ASTHMA
     Dates: start: 20061101, end: 20070101
  7. KLARICID [Concomitant]
     Indication: SINUSITIS
     Route: 048
     Dates: start: 20060613
  8. NEUZYM [Concomitant]
     Indication: SINUSITIS
     Route: 048
     Dates: start: 20060613
  9. THEO-DUR [Concomitant]
     Indication: ASTHMA
     Route: 048
     Dates: start: 20060613
  10. ZADITEN [Concomitant]
     Indication: RHINITIS ALLERGIC
     Route: 048
     Dates: start: 20060613
  11. INTAL [Concomitant]
     Indication: ASTHMA
     Dates: start: 20060613
  12. MEPTIN [Concomitant]
     Indication: ASTHMA
     Dates: start: 20060613

REACTIONS (6)
  - ASTHMA [None]
  - BLOOD CORTISOL DECREASED [None]
  - BONE DENSITY DECREASED [None]
  - GROWTH RETARDATION [None]
  - PNEUMONIA [None]
  - WEIGHT INCREASED [None]
